FAERS Safety Report 20699216 (Version 2)
Quarter: 2022Q2

REPORT INFORMATION
  Report Type: Report from Study
  Country: RU (occurrence: RU)
  Receive Date: 20220412
  Receipt Date: 20220414
  Transmission Date: 20220720
  Serious: Yes (Hospitalization)
  Sender: FDA-Public Use
  Company Number: RU-NOVARTISPH-NVSC2022RU079887

PATIENT
  Age: 77 Year
  Sex: Female

DRUGS (8)
  1. RIBOCICLIB [Suspect]
     Active Substance: RIBOCICLIB
     Indication: HER2 negative breast cancer
     Dosage: 200 MG, QD
     Route: 048
     Dates: start: 20190723
  2. LETROZOLE [Suspect]
     Active Substance: LETROZOLE
     Indication: HER2 negative breast cancer
     Dosage: 2.5 MG, QD
     Route: 048
     Dates: start: 20190723
  3. LISINOPRIL [Concomitant]
     Active Substance: LISINOPRIL
     Indication: Hypertension
     Dosage: 5 MG, QD
     Route: 048
     Dates: start: 20151005
  4. ZOLEDRONIC ACID [Concomitant]
     Active Substance: ZOLEDRONIC ACID
     Indication: Osteoporosis
     Dosage: 4 MG ONCE EVERY 3 MONTHS
     Route: 042
     Dates: start: 20201220
  5. CALCEMIN [Concomitant]
     Active Substance: BORON\PREVITAMIN D3\ZINC
     Indication: Osteoporosis
     Dosage: 1 DOSAGE FORM (TAB), QD
     Route: 048
     Dates: start: 20210413
  6. VITAMIN D [Concomitant]
     Active Substance: VITAMIN D NOS
     Indication: Osteoporosis
     Dosage: 10 MCG/ML, QD
     Route: 048
     Dates: start: 20210413
  7. MEMANTINE [Concomitant]
     Active Substance: MEMANTINE
     Indication: Encephalopathy
     Dosage: 20 MG, QD
     Route: 065
     Dates: start: 20211224
  8. CLONAZEPAM [Concomitant]
     Active Substance: CLONAZEPAM
     Indication: Encephalopathy
     Dosage: 0.5 MG, QD
     Route: 065
     Dates: start: 20211224

REACTIONS (1)
  - Cataract [Recovered/Resolved]

NARRATIVE: CASE EVENT DATE: 20220406
